FAERS Safety Report 7258472-3 (Version None)
Quarter: 2011Q1

REPORT INFORMATION
  Report Type: 
  Country: None (occurrence: None)
  Receive Date: 20110129
  Receipt Date: 20100816
  Transmission Date: 20110831
  Serious: No
  Sender: FDA-Public Use
  Company Number: US-ABBOTT-10P-163-0665285-00

PATIENT
  Age: 56 Year
  Sex: Female

DRUGS (1)
  1. HUMIRA [Suspect]
     Indication: PSORIATIC ARTHROPATHY
     Dates: start: 20100501

REACTIONS (4)
  - INJECTION SITE SWELLING [None]
  - DRUG INEFFECTIVE [None]
  - INJECTION SITE RASH [None]
  - PRURITUS [None]
